FAERS Safety Report 21062311 (Version 1)
Quarter: 2022Q3

REPORT INFORMATION
  Report Type: Spontaneous
  Country: CN (occurrence: CN)
  Receive Date: 20220711
  Receipt Date: 20220711
  Transmission Date: 20221026
  Serious: Yes (Other)
  Sender: FDA-Public Use
  Company Number: CN-JNJFOC-20220700568

PATIENT

DRUGS (3)
  1. RISPERDAL [Suspect]
     Active Substance: RISPERIDONE
     Indication: Schizophrenia
     Route: 065
  2. RISPERDAL [Suspect]
     Active Substance: RISPERIDONE
     Indication: Bipolar I disorder
  3. RISPERDAL [Suspect]
     Active Substance: RISPERIDONE
     Indication: Psychotic disorder

REACTIONS (69)
  - Bradycardia [Unknown]
  - Electrocardiogram QT prolonged [Unknown]
  - Platelet count decreased [Unknown]
  - Extrapyramidal disorder [Unknown]
  - Orthostatic hypotension [Unknown]
  - Transaminases increased [Unknown]
  - Rhabdomyolysis [Unknown]
  - Urinary retention [Unknown]
  - Myocardial necrosis marker increased [Unknown]
  - Hyponatraemia [Unknown]
  - Ileus paralytic [Unknown]
  - Xerophthalmia [Unknown]
  - Diplopia [Unknown]
  - Off label use [Unknown]
  - Off label use [Unknown]
  - Anxiety [Unknown]
  - Asthenia [Unknown]
  - Dizziness [Unknown]
  - Fatigue [Unknown]
  - Somnolence [Unknown]
  - Depression [Unknown]
  - Indifference [Unknown]
  - Headache [Unknown]
  - Language disorder [Unknown]
  - Ataxia [Unknown]
  - Cognitive disorder [Unknown]
  - Blood prolactin increased [Unknown]
  - Menstrual disorder [Unknown]
  - Amenorrhoea [Unknown]
  - Galactorrhoea [Unknown]
  - Blood insulin increased [Unknown]
  - Thyroxine decreased [Unknown]
  - Tachycardia [Unknown]
  - Palpitations [Unknown]
  - Constipation [Unknown]
  - Nausea [Unknown]
  - Dry mouth [Unknown]
  - Vomiting [Unknown]
  - Abdominal distension [Unknown]
  - Appetite disorder [Unknown]
  - Eructation [Unknown]
  - Gastrooesophageal reflux disease [Unknown]
  - Abdominal pain [Unknown]
  - Dysgeusia [Unknown]
  - Hypoaesthesia oral [Unknown]
  - White blood cell count decreased [Unknown]
  - Granulocyte count decreased [Unknown]
  - White blood cell count increased [Unknown]
  - Anaemia [Unknown]
  - Oedema [Unknown]
  - Hyperlipidaemia [Unknown]
  - Blood glucose increased [Unknown]
  - Dyslipidaemia [Unknown]
  - Rash maculo-papular [Unknown]
  - Pruritus [Unknown]
  - Dry skin [Unknown]
  - Dysuria [Unknown]
  - Urinary incontinence [Unknown]
  - Breast pain [Unknown]
  - Gynaecomastia [Unknown]
  - Breast induration [Unknown]
  - Visual impairment [Unknown]
  - Vision blurred [Unknown]
  - Arthralgia [Unknown]
  - Cough [Unknown]
  - Night sweats [Unknown]
  - Off label use [Unknown]
  - Blood triglycerides increased [Unknown]
  - Body mass index increased [Unknown]
